FAERS Safety Report 14355262 (Version 1)
Quarter: 2018Q1

REPORT INFORMATION
  Report Type: Spontaneous
  Country: KR (occurrence: KR)
  Receive Date: 20180105
  Receipt Date: 20180105
  Transmission Date: 20180509
  Serious: Yes (Hospitalization)
  Sender: FDA-Public Use
  Company Number: KR-BAYER-2018-002797

PATIENT
  Age: 45 Year
  Sex: Male

DRUGS (1)
  1. GADOVIST [Suspect]
     Active Substance: GADOBUTROL
     Dosage: 15 ML, ONCE

REACTIONS (5)
  - Micturition urgency [None]
  - Lethargy [None]
  - Vomiting [None]
  - Mental impairment [None]
  - Aphasia [None]

NARRATIVE: CASE EVENT DATE: 20180105
